FAERS Safety Report 23228934 (Version 1)
Quarter: 2023Q4

REPORT INFORMATION
  Report Type: Spontaneous
  Country: US (occurrence: None)
  Receive Date: 20231126
  Receipt Date: 20231126
  Transmission Date: 20240110
  Serious: No
  Sender: FDA-Public Use
  Company Number: US-ROCHE-3342410

PATIENT
  Age: 47 Year
  Sex: Female

DRUGS (2)
  1. HERCEPTIN [Suspect]
     Active Substance: TRASTUZUMAB
     Indication: HER2 positive breast cancer
     Route: 041
     Dates: start: 201708, end: 20171122
  2. PERJETA [Suspect]
     Active Substance: PERTUZUMAB
     Indication: HER2 positive breast cancer
     Route: 042
     Dates: start: 201708, end: 20171122

REACTIONS (8)
  - Haematochezia [Recovered/Resolved]
  - Scratch [Recovered/Resolved]
  - Haemorrhage [Recovered/Resolved]
  - Asthenia [Recovered/Resolved]
  - Movement disorder [Recovered/Resolved]
  - Pain [Recovered/Resolved]
  - Lacrimation increased [Recovered/Resolved]
  - Fatigue [Recovered/Resolved]
